FAERS Safety Report 18795036 (Version 3)
Quarter: 2021Q1

REPORT INFORMATION
  Report Type: Report from Study
  Country: US (occurrence: US)
  Receive Date: 20210127
  Receipt Date: 20210226
  Transmission Date: 20210419
  Serious: Yes (Hospitalization)
  Sender: FDA-Public Use
  Company Number: US-BAYER-2021-033303

PATIENT
  Age: 73 Year
  Sex: Male
  Weight: 85.26 kg

DRUGS (6)
  1. ADEMPAS [Suspect]
     Active Substance: RIOCIGUAT
     Indication: PULMONARY ARTERIAL HYPERTENSION
     Dosage: 2 MG, TID
     Route: 048
  2. UPTRAVI [Concomitant]
     Active Substance: SELEXIPAG
  3. ADEMPAS [Suspect]
     Active Substance: RIOCIGUAT
     Indication: PULMONARY ARTERIAL HYPERTENSION
     Dosage: 1.5 MG, TID
     Route: 048
  4. OPSUMIT [Concomitant]
     Active Substance: MACITENTAN
  5. ELIQUIS [Concomitant]
     Active Substance: APIXABAN
  6. ADEMPAS [Suspect]
     Active Substance: RIOCIGUAT
     Indication: PULMONARY ARTERIAL HYPERTENSION
     Dosage: UNK
     Route: 048
     Dates: start: 20201027

REACTIONS (6)
  - Hospitalisation [None]
  - Dyspnoea [Not Recovered/Not Resolved]
  - Oxygen saturation decreased [None]
  - Oxygen consumption decreased [Not Recovered/Not Resolved]
  - Gait inability [None]
  - Carbon dioxide increased [None]

NARRATIVE: CASE EVENT DATE: 202101
